FAERS Safety Report 7124426-0 (Version None)
Quarter: 2010Q4

REPORT INFORMATION
  Report Type: 
  Country: None (occurrence: None)
  Receive Date: 20101126
  Receipt Date: 20080318
  Transmission Date: 20110411
  Serious: Yes (Hospitalization, Other)
  Sender: FDA-Public Use
  Company Number: PHHY2008NZ37233

PATIENT
  Sex: Female

DRUGS (5)
  1. EXELON [Suspect]
     Dosage: 4.6 MG PATCH
     Route: 062
     Dates: start: 20080311
  2. CILAZAPRIL/HYDROCHLOROTHIAZIDE [Suspect]
     Indication: BLOOD PRESSURE
     Dosage: 5/12.5MG, ONE TABLET A DAY
  3. WARFARIN [Concomitant]
  4. PRILOSEC [Concomitant]
  5. LIPITOR [Concomitant]

REACTIONS (6)
  - CONFUSIONAL STATE [None]
  - CYSTITIS [None]
  - DECREASED APPETITE [None]
  - LETHARGY [None]
  - SOMNOLENCE [None]
  - SYNCOPE [None]
